FAERS Safety Report 4286512-2 (Version None)
Quarter: 2004Q1

REPORT INFORMATION
  Report Type: 
  Country: None (occurrence: None)
  Receive Date: 20040204
  Receipt Date: 20040126
  Transmission Date: 20041129
  Serious: Yes (Hospitalization)
  Sender: FDA-Public Use
  Company Number: 2004195908US

PATIENT
  Age: 42 Year
  Sex: Female
  Weight: 57.6 kg

DRUGS (4)
  1. SU005416 [Concomitant]
     Indication: COLON CANCER METASTATIC
     Dosage: 234.35 MG, (TWICE WEEKLY), IV
     Route: 042
     Dates: start: 20010322, end: 20010510
  2. CAMPTOSAR [Suspect]
     Indication: COLON CANCER METASTATIC
     Dosage: 156 MG, WEEKLY, IV
     Route: 042
     Dates: start: 20010322, end: 20010510
  3. ADRUCIL (FLUOROURACIL, FLUOROURACIL) [Suspect]
     Indication: COLON CANCER METASTATIC
     Dosage: 624 MG, WEEKLY, IV
     Route: 042
     Dates: start: 20010322, end: 20010510
  4. LEUCOVORIN CALCIUM [Suspect]
     Indication: COLON CANCER METASTATIC
     Dosage: 33 MG, WEEKLY, IV
     Route: 042
     Dates: start: 20010322, end: 20010510

REACTIONS (4)
  - ASTHENIA [None]
  - DYSARTHRIA [None]
  - PNEUMONIA [None]
  - WHITE BLOOD CELL COUNT DECREASED [None]
